FAERS Safety Report 22284384 (Version 1)
Quarter: 2023Q2

REPORT INFORMATION
  Report Type: Spontaneous
  Country: US (occurrence: US)
  Receive Date: 20230504
  Receipt Date: 20230504
  Transmission Date: 20230722
  Serious: No
  Sender: FDA-Public Use
  Company Number: US-BAYER-2023A057499

PATIENT
  Sex: Female

DRUGS (3)
  1. KERENDIA [Interacting]
     Active Substance: FINERENONE
     Indication: Chronic kidney disease
     Dosage: 10 MG
     Dates: start: 202212
  2. KERENDIA [Interacting]
     Active Substance: FINERENONE
     Indication: Type 2 diabetes mellitus
  3. GRAPEFRUIT [Interacting]
     Active Substance: GRAPEFRUIT

REACTIONS (2)
  - Blood potassium increased [None]
  - Labelled drug-food interaction medication error [None]
